FAERS Safety Report 12846243 (Version 1)
Quarter: 2016Q4

REPORT INFORMATION
  Report Type: Spontaneous
  Country: BE (occurrence: BE)
  Receive Date: 20161014
  Receipt Date: 20161014
  Transmission Date: 20170207
  Serious: Yes (Death, Other)
  Sender: FDA-Public Use
  Company Number: BE-CIPLA LTD.-2016BE19277

PATIENT

DRUGS (1)
  1. LISINOPRIL. [Suspect]
     Active Substance: LISINOPRIL
     Indication: CARDIAC FAILURE
     Dosage: UNK
     Route: 048

REACTIONS (2)
  - Congenital cardiovascular anomaly [Fatal]
  - Off label use [Unknown]
